FAERS Safety Report 16194419 (Version 1)
Quarter: 2019Q2

REPORT INFORMATION
  Report Type: Spontaneous
  Country: US (occurrence: US)
  Receive Date: 20190414
  Receipt Date: 20190414
  Transmission Date: 20190711
  Serious: No
  Sender: FDA-Public Use
  Company Number: US-TEVA-2019-US-1034530

PATIENT
  Sex: Female

DRUGS (1)
  1. BUPRENORPHINE. [Suspect]
     Active Substance: BUPRENORPHINE
     Indication: ANALGESIC THERAPY
     Dosage: DOSE STRENGTH : 8 , NO UNITS PROVIDED
     Dates: start: 20190305

REACTIONS (6)
  - Nasopharyngitis [Unknown]
  - Product communication issue [Unknown]
  - Wrong technique in product usage process [Unknown]
  - Tongue discomfort [Unknown]
  - Physical product label issue [Unknown]
  - Product size issue [Unknown]

NARRATIVE: CASE EVENT DATE: 2019
